FAERS Safety Report 10421063 (Version 1)
Quarter: 2014Q3

REPORT INFORMATION
  Report Type: Spontaneous
  Country: US (occurrence: None)
  Receive Date: 20140722
  Receipt Date: 20140722
  Transmission Date: 20150326
  Serious: No
  Sender: FDA-Public Use
  Company Number: 163-10004-14051361

PATIENT
  Age: 64 Year
  Sex: Female
  Weight: 71.22 kg

DRUGS (3)
  1. BISOPROLOL (BISOPROLOL) [Concomitant]
     Active Substance: BISOPROLOL
  2. IBUPROFEN (IBUPROFEN) [Concomitant]
     Active Substance: IBUPROFEN
  3. OTEZLA [Suspect]
     Active Substance: APREMILAST
     Indication: PSORIATIC ARTHROPATHY
     Route: 048
     Dates: start: 20140430

REACTIONS (4)
  - Diarrhoea [None]
  - Insomnia [None]
  - Abdominal pain upper [None]
  - Nausea [None]

NARRATIVE: CASE EVENT DATE: 20140430
